FAERS Safety Report 7513297-6 (Version None)
Quarter: 2011Q2

REPORT INFORMATION
  Report Type: 
  Country: None (occurrence: None)
  Receive Date: 20110531
  Receipt Date: 20110519
  Transmission Date: 20111010
  Serious: Yes (Other)
  Sender: FDA-Public Use
  Company Number: US-ASTRAZENECA-2011SE31199

PATIENT
  Age: 68 Year
  Sex: Female

DRUGS (1)
  1. ATACAND [Suspect]
     Route: 048

REACTIONS (3)
  - ABDOMINAL DISCOMFORT [None]
  - BRADYCARDIA [None]
  - OVARIAN CANCER [None]
